FAERS Safety Report 6056192-4 (Version None)
Quarter: 2009Q1

REPORT INFORMATION
  Report Type: 
  Country: None (occurrence: None)
  Receive Date: 20090123
  Receipt Date: 20090123
  Transmission Date: 20090719
  Serious: No
  Sender: FDA-Public Use
  Company Number: None

PATIENT
  Sex: Male
  Weight: 77 kg

DRUGS (3)
  1. FLUOROURACIL [Suspect]
     Dosage: 2060 MG
     Dates: end: 20080305
  2. BEVACIZUMAB (RHUMAB VEGF) [Suspect]
     Dosage: 1122 MG
     Dates: end: 20080305
  3. CISPLATIN [Suspect]
     Dosage: 124 MG
     Dates: end: 20080305

REACTIONS (4)
  - DEHYDRATION [None]
  - DIARRHOEA [None]
  - MUCOSAL INFLAMMATION [None]
  - RENAL FAILURE [None]
